FAERS Safety Report 4928272-5 (Version None)
Quarter: 2006Q1

REPORT INFORMATION
  Report Type: 
  Country: None (occurrence: None)
  Receive Date: 20060228
  Receipt Date: 20050407
  Transmission Date: 20060701
  Serious: Yes (Hospitalization)
  Sender: FDA-Public Use
  Company Number: US-MERCK-0504USA01174

PATIENT
  Age: 61 Year
  Sex: Female
  Weight: 85 kg

DRUGS (22)
  1. VIOXX [Suspect]
     Indication: ARTHRITIS
     Route: 048
     Dates: start: 20010115, end: 20010305
  2. VIOXX [Suspect]
     Route: 048
     Dates: start: 20010306, end: 20040809
  3. VIOXX [Suspect]
     Route: 048
     Dates: start: 20040810, end: 20040930
  4. ASPIRIN [Concomitant]
     Route: 065
  5. PREMARIN [Concomitant]
     Route: 065
  6. FLEXERIL [Concomitant]
     Route: 065
  7. LOVASTATIN [Concomitant]
     Route: 065
  8. LIPITOR [Concomitant]
     Route: 065
  9. HYDROCHLOROTHIAZIDE [Concomitant]
     Route: 065
  10. PRINIVIL [Concomitant]
     Route: 065
  11. ATENOLOL [Concomitant]
     Route: 065
  12. CARBIDOPA [Concomitant]
     Route: 065
  13. AGGRENOX [Concomitant]
     Route: 065
  14. AMBIEN [Concomitant]
     Route: 065
  15. CLONIDINE [Concomitant]
     Route: 065
  16. NAPROXEN [Concomitant]
     Route: 065
  17. POTASSIUM CHLORIDE [Concomitant]
     Route: 065
  18. TRAZODONE HYDROCHLORIDE [Concomitant]
     Route: 065
  19. LORAZEPAM [Concomitant]
     Route: 065
  20. CEPHALEXIN [Concomitant]
     Route: 065
  21. DIAZEPAM [Concomitant]
     Route: 065
  22. CATAPRES [Concomitant]
     Route: 065

REACTIONS (32)
  - ANAEMIA [None]
  - ANXIETY [None]
  - BLOOD CHOLESTEROL INCREASED [None]
  - BLOOD PRESSURE INCREASED [None]
  - CEREBROVASCULAR ACCIDENT [None]
  - CHEST DISCOMFORT [None]
  - CHEST PAIN [None]
  - DEPRESSION [None]
  - DYSPEPSIA [None]
  - HYPERLIPIDAEMIA [None]
  - INSOMNIA [None]
  - INTESTINAL POLYP [None]
  - MALAISE [None]
  - MITRAL VALVE INCOMPETENCE [None]
  - MYALGIA [None]
  - NAUSEA [None]
  - NECK PAIN [None]
  - NOCTURIA [None]
  - PAIN IN EXTREMITY [None]
  - PALPITATIONS [None]
  - PANIC DISORDER [None]
  - PSORIASIS [None]
  - RENAL FAILURE [None]
  - RESTLESS LEGS SYNDROME [None]
  - SHOULDER PAIN [None]
  - SINUS BRADYCARDIA [None]
  - STRESS [None]
  - TACHYCARDIA [None]
  - TRANSIENT ISCHAEMIC ATTACK [None]
  - TRICUSPID VALVE INCOMPETENCE [None]
  - VAGINAL PAIN [None]
  - VENTRICULAR HYPERTROPHY [None]
